FAERS Safety Report 14600905 (Version 2)
Quarter: 2018Q1

REPORT INFORMATION
  Report Type: Spontaneous
  Country: NL (occurrence: NL)
  Receive Date: 20180305
  Receipt Date: 20180316
  Transmission Date: 20180509
  Serious: Yes (Hospitalization)
  Sender: FDA-Public Use
  Company Number: NL-TEVA-2018-NL-864045

PATIENT
  Age: 80 Year
  Sex: Male
  Weight: 80 kg

DRUGS (7)
  1. FUROSEMIDE 80 MG [Concomitant]
     Active Substance: FUROSEMIDE
     Dosage: 80 MG 2 DD
  2. ENALAPRIL 40 MG [Concomitant]
     Dosage: 40 MG 1 DD
  3. AMLODIPINE 10 MG [Concomitant]
     Active Substance: AMLODIPINE BESYLATE
     Dosage: 10 MG 1 DD
  4. DARBEPOETINE 500 UG/ML WWSP 1 ML [Concomitant]
     Active Substance: DARBEPOETIN ALFA
  5. AMIODARON TABLET, 200 MG (MILLIGRAM) [Suspect]
     Active Substance: AMIODARONE
     Dosage: 100 MILLIGRAM DAILY; 0,5 TABLET ONCE DAILY
     Dates: start: 20160919, end: 20171002
  6. FINASTERIDE 5 MG [Concomitant]
     Active Substance: FINASTERIDE
     Dosage: 5 MG 1 DD
  7. DOXAZOSINE 8 MG [Concomitant]
     Dosage: 8 MG 1 DD

REACTIONS (4)
  - Rash papular [Recovering/Resolving]
  - Toxic skin eruption [Recovering/Resolving]
  - Lichenification [Recovering/Resolving]
  - Pruritus generalised [Recovering/Resolving]

NARRATIVE: CASE EVENT DATE: 20170905
